FAERS Safety Report 5809796-5 (Version None)
Quarter: 2008Q3

REPORT INFORMATION
  Report Type: 
  Country: None (occurrence: None)
  Receive Date: 20080714
  Receipt Date: 20080703
  Transmission Date: 20090109
  Serious: No
  Sender: FDA-Public Use
  Company Number: 08H-163-0314539-00

PATIENT
  Age: 52 Year
  Sex: Male

DRUGS (1)
  1. HEPARIN SODIUM 2000 UNITS IN SODIUM CHLORIDE 0.9% [Suspect]
     Indication: DRUG USE FOR UNKNOWN INDICATION
     Dosage: INTRAVENOUS DRIP
     Route: 042
     Dates: start: 20080624, end: 20080702

REACTIONS (2)
  - ANTIBODY TEST POSITIVE [None]
  - PLATELET COUNT DECREASED [None]
